FAERS Safety Report 20159826 (Version 2)
Quarter: 2021Q4

REPORT INFORMATION
  Report Type: Spontaneous
  Country: UA (occurrence: None)
  Receive Date: 20211208
  Receipt Date: 20211216
  Transmission Date: 20220303
  Serious: Yes (Other)
  Sender: FDA-Public Use
  Company Number: 2021A851977

PATIENT
  Age: 71 Year
  Sex: Male

DRUGS (5)
  1. DAPAGLIFLOZIN [Suspect]
     Active Substance: DAPAGLIFLOZIN
     Indication: Cardiac failure
     Route: 048
     Dates: start: 20211119, end: 20211122
  2. CORYOL [Concomitant]
  3. SACUBITRIL\VALSARTAN [Concomitant]
     Active Substance: SACUBITRIL\VALSARTAN
  4. TORSEMIDE [Concomitant]
     Active Substance: TORSEMIDE
  5. EPLERENONE [Concomitant]
     Active Substance: EPLERENONE

REACTIONS (5)
  - Asthenia [Recovering/Resolving]
  - General physical health deterioration [Unknown]
  - Malaise [Recovering/Resolving]
  - Dizziness [Recovering/Resolving]
  - Depressed mood [Recovering/Resolving]

NARRATIVE: CASE EVENT DATE: 20211121
